FAERS Safety Report 9583280 (Version 1)
Quarter: 2013Q4

REPORT INFORMATION
  Report Type: Spontaneous
  Country: US (occurrence: US)
  Receive Date: 20131002
  Receipt Date: 20131002
  Transmission Date: 20140711
  Serious: No
  Sender: FDA-Public Use
  Company Number: US-AMGEN-USASP2013046172

PATIENT
  Age: 55 Year
  Sex: Female
  Weight: 50.79 kg

DRUGS (7)
  1. ENBREL [Suspect]
     Indication: PRODUCT USED FOR UNKNOWN INDICATION
     Dosage: 50 MG, QWK
     Route: 058
  2. CYMBALTA [Concomitant]
     Dosage: 20 MG, UNK
  3. AMLODIPINE [Concomitant]
     Dosage: 10 MG, UNK
  4. LOVASTATIN [Concomitant]
     Dosage: 10 MG, UNK
  5. LISINOPRIL [Concomitant]
     Dosage: 10 MG, UNK
  6. MULTIVITAMINS, PLAIN [Concomitant]
     Dosage: UNK
  7. PERCOCET                           /00867901/ [Concomitant]
     Dosage: 7.5-500

REACTIONS (1)
  - Drug ineffective [Unknown]
